FAERS Safety Report 9045837 (Version 1)
Quarter: 2013Q1

REPORT INFORMATION
  Report Type: Report from Study
  Country: US (occurrence: US)
  Receive Date: 20130201
  Receipt Date: 20130201
  Transmission Date: 20140127
  Serious: No
  Sender: FDA-Public Use
  Company Number: US-ABBOTT-12P-163-1016884-00

PATIENT
  Sex: Female
  Weight: 73.55 kg

DRUGS (4)
  1. HUMIRA [Suspect]
     Indication: RHEUMATOID ARTHRITIS
     Dates: end: 201206
  2. PREDNISONE [Concomitant]
     Indication: PRODUCT USED FOR UNKNOWN INDICATION
  3. VICODIN [Concomitant]
     Indication: PRODUCT USED FOR UNKNOWN INDICATION
  4. PRILOSEC [Concomitant]
     Indication: GASTROOESOPHAGEAL REFLUX DISEASE

REACTIONS (5)
  - Skin exfoliation [Recovering/Resolving]
  - Dry skin [Not Recovered/Not Resolved]
  - Dry skin [Not Recovered/Not Resolved]
  - Dry skin [Not Recovered/Not Resolved]
  - Arthritis [Not Recovered/Not Resolved]
